FAERS Safety Report 5893070-5 (Version None)
Quarter: 2008Q3

REPORT INFORMATION
  Report Type: 
  Country: None (occurrence: None)
  Receive Date: 20080923
  Receipt Date: 20080201
  Transmission Date: 20090109
  Serious: No
  Sender: FDA-Public Use
  Company Number: US-ASTRAZENECA-2006UW12298

PATIENT
  Age: 349 Month
  Sex: Female
  Weight: 90.9 kg

DRUGS (17)
  1. SEROQUEL [Suspect]
     Indication: SCHIZOPHRENIA
     Route: 048
     Dates: start: 20000101
  2. SEROQUEL [Suspect]
     Dosage: 100 TO 200 MG
     Route: 048
     Dates: start: 20010906
  3. SEROQUEL [Suspect]
     Route: 048
     Dates: start: 20050228
  4. SEROQUEL [Suspect]
     Route: 048
     Dates: start: 20050721
  5. SEROQUEL [Suspect]
     Route: 048
     Dates: start: 20060123, end: 20060401
  6. ABILIFY [Concomitant]
     Dates: start: 20070101
  7. HALDOL [Concomitant]
     Dosage: 5 MG TO 10 MG
     Dates: start: 19910101
  8. RISPERDAL [Concomitant]
     Dosage: 1 - 3 MG
     Dates: start: 19940512, end: 19940609
  9. ZYPREXA [Concomitant]
     Dates: start: 19981021, end: 20000711
  10. SERZONE [Concomitant]
     Dates: start: 20001120
  11. ZOLOFT [Concomitant]
     Dates: start: 20001120
  12. LAMICTAL [Concomitant]
     Dates: start: 20001120
  13. BENZOTROPINE [Concomitant]
     Dates: start: 20001120
  14. FLUPHENAZINE [Concomitant]
     Dates: start: 20000427
  15. GLUCOPHAGE [Concomitant]
     Indication: DIABETES MELLITUS
     Route: 048
  16. EFFEXOR XR [Concomitant]
  17. BENADRYL [Concomitant]

REACTIONS (3)
  - DRUG EXPOSURE DURING PREGNANCY [None]
  - TYPE 2 DIABETES MELLITUS [None]
  - WEIGHT INCREASED [None]
